FAERS Safety Report 5882869-7 (Version None)
Quarter: 2008Q3

REPORT INFORMATION
  Report Type: 
  Country: None (occurrence: None)
  Receive Date: 20080913
  Receipt Date: 20080820
  Transmission Date: 20090109
  Serious: No
  Sender: FDA-Public Use
  Company Number: US-ABBOTT-08P-163-0471661-00

PATIENT
  Sex: Female
  Weight: 79.904 kg

DRUGS (10)
  1. HUMIRA [Suspect]
     Indication: RHEUMATOID ARTHRITIS
     Route: 058
     Dates: start: 20070301
  2. ESTROGENS CONJUGATED [Concomitant]
     Indication: HORMONE REPLACEMENT THERAPY
     Route: 048
     Dates: start: 19870101
  3. MELOXICAM [Concomitant]
     Indication: RHEUMATOID ARTHRITIS
     Route: 048
     Dates: start: 20070201
  4. METHOTREXATE [Concomitant]
     Indication: RHEUMATOID ARTHRITIS
     Dosage: 2.5 MG X 7
     Route: 048
     Dates: start: 20060101
  5. PRIMIDONE [Concomitant]
     Indication: TREMOR
     Route: 048
     Dates: start: 20070601
  6. PRIMIDONE [Concomitant]
     Indication: CONVULSION
  7. PHENYTOIN [Concomitant]
     Indication: PETIT MAL EPILEPSY
     Route: 048
     Dates: start: 20070601
  8. PHENYTOIN [Concomitant]
     Indication: MIGRAINE
  9. ALBUTEROL SPIROS [Concomitant]
     Indication: ASTHMA
     Route: 055
     Dates: start: 19980101
  10. FLUOXETINE [Concomitant]
     Indication: DEPRESSION
     Route: 048
     Dates: start: 20050101

REACTIONS (3)
  - BRONCHITIS [None]
  - HYPOTHYROIDISM [None]
  - RHEUMATOID ARTHRITIS [None]
